FAERS Safety Report 7471063-4 (Version None)
Quarter: 2011Q2

REPORT INFORMATION
  Report Type: 
  Country: None (occurrence: None)
  Receive Date: 20110510
  Receipt Date: 20110426
  Transmission Date: 20111010
  Serious: Yes (Hospitalization)
  Sender: FDA-Public Use
  Company Number: US-JNJFOC-20110412291

PATIENT
  Sex: Male
  Weight: 12.7 kg

DRUGS (10)
  1. PROBIOTICS [Concomitant]
  2. PREDNISONE [Concomitant]
  3. BACTRIM [Concomitant]
  4. REMICADE [Suspect]
     Indication: INFLAMMATORY BOWEL DISEASE
     Route: 042
  5. MORPHINE [Concomitant]
  6. REMICADE [Suspect]
     Route: 042
  7. KEFLEX [Concomitant]
  8. FERROUS SULFATE TAB [Concomitant]
  9. HYDROCODONE BITARTRATE [Concomitant]
  10. ACETAMINOPHEN [Concomitant]

REACTIONS (1)
  - INFLAMMATORY BOWEL DISEASE [None]
